FAERS Safety Report 12409288 (Version 1)
Quarter: 2016Q2

REPORT INFORMATION
  Report Type: Spontaneous
  Country: US (occurrence: US)
  Receive Date: 20160526
  Receipt Date: 20160526
  Transmission Date: 20160815
  Serious: Yes (Hospitalization, Other)
  Sender: FDA-Public Use
  Company Number: US-BELCHER PHARMACEUTICALS, LLC-2016VTS00008

PATIENT
  Age: 20 Year
  Sex: Female
  Weight: 64 kg

DRUGS (6)
  1. TRI-SPRINTEC [Concomitant]
     Active Substance: ETHINYL ESTRADIOL\NORGESTIMATE
     Dosage: UNK, 1X/DAY
     Route: 048
  2. BIOTIN [Concomitant]
     Active Substance: BIOTIN
     Dosage: UNK
  3. OMEPRAZOLE. [Concomitant]
     Active Substance: OMEPRAZOLE
     Dosage: UNK
  4. HYOSCYAMINE SULFATE ODT [Suspect]
     Active Substance: HYOSCYAMINE SULFATE
     Dosage: DOSE INCREASED
     Route: 048
     Dates: start: 201602, end: 20160227
  5. HYOSCYAMINE SULFATE ODT [Suspect]
     Active Substance: HYOSCYAMINE SULFATE
     Indication: ABDOMINAL PAIN
     Dosage: 1 TABLETS, 2X/DAY
     Route: 048
     Dates: start: 2015, end: 201602
  6. SUCRALFATE. [Concomitant]
     Active Substance: SUCRALFATE

REACTIONS (9)
  - Metabolic encephalopathy [Recovered/Resolved]
  - Loss of consciousness [Recovered/Resolved]
  - Dysgeusia [Recovered/Resolved]
  - Sinus tachycardia [Recovered/Resolved]
  - Vision blurred [Recovered/Resolved]
  - Product taste abnormal [None]
  - Mydriasis [Recovered/Resolved]
  - Anticholinergic syndrome [Recovered/Resolved]
  - Accidental overdose [None]

NARRATIVE: CASE EVENT DATE: 20160226
